FAERS Safety Report 8680478 (Version 7)
Quarter: 2013Q2

REPORT INFORMATION
  Report Type: Spontaneous
  Country: BR (occurrence: BR)
  Receive Date: 20120724
  Receipt Date: 20130430
  Transmission Date: 20140414
  Serious: Yes (Other)
  Sender: FDA-Public Use
  Company Number: PHHY2012BR051617

PATIENT
  Age: 43 Year
  Sex: Male
  Weight: 120 kg

DRUGS (1)
  1. GILENYA [Suspect]
     Indication: MULTIPLE SCLEROSIS
     Dosage: 0.5 MG, UNK
     Route: 048

REACTIONS (14)
  - Blindness unilateral [Recovered/Resolved]
  - Quadriplegia [Recovered/Resolved]
  - Dysarthria [Recovered/Resolved]
  - Central nervous system lesion [Recovered/Resolved]
  - Deafness unilateral [Recovered/Resolved]
  - Insomnia [Recovered/Resolved]
  - Feeling hot [Recovered/Resolved]
  - Hypoacusis [Recovered/Resolved]
  - Visual acuity reduced [Recovered/Resolved]
  - Hypoaesthesia [Recovered/Resolved]
  - Pruritus generalised [Not Recovered/Not Resolved]
  - Influenza [Unknown]
  - Dysphonia [Recovering/Resolving]
  - Stress [Recovered/Resolved]
